FAERS Safety Report 5508163-1 (Version None)
Quarter: 2007Q4

REPORT INFORMATION
  Report Type: 
  Country: None (occurrence: None)
  Receive Date: 20071106
  Receipt Date: 20071025
  Transmission Date: 20080405
  Serious: Yes (Hospitalization)
  Sender: FDA-Public Use
  Company Number: CA-PFIZER INC-2007090076

PATIENT
  Age: 67 Year
  Sex: Female
  Weight: 64 kg

DRUGS (4)
  1. AROMASIN [Suspect]
     Indication: BREAST CANCER
     Route: 048
  2. ACTONEL [Concomitant]
  3. CALCIUM CARBONATE [Concomitant]
  4. VITAMIN D [Concomitant]

REACTIONS (1)
  - DEEP VEIN THROMBOSIS [None]
